FAERS Safety Report 10358271 (Version 2)
Quarter: 2014Q3

REPORT INFORMATION
  Report Type: Spontaneous
  Country: US (occurrence: US)
  Receive Date: 20140801
  Receipt Date: 20140801
  Transmission Date: 20150326
  Serious: Yes (Hospitalization, Other)
  Sender: FDA-Public Use
  Company Number: US-009507513-2011SP035856

PATIENT
  Sex: Female
  Weight: 74.84 kg

DRUGS (2)
  1. NUVARING [Suspect]
     Active Substance: ETHINYL ESTRADIOL\ETONOGESTREL
     Indication: MENSTRUAL DISCOMFORT
     Route: 067
     Dates: start: 200805, end: 200808
  2. NUVARING [Suspect]
     Active Substance: ETHINYL ESTRADIOL\ETONOGESTREL
     Indication: MENORRHAGIA

REACTIONS (8)
  - Thrombophlebitis superficial [Recovering/Resolving]
  - Deep vein thrombosis [Recovering/Resolving]
  - Vaginal haemorrhage [Unknown]
  - Off label use [Unknown]
  - Anaemia [Unknown]
  - Varicose vein operation [Recovering/Resolving]
  - Breast cancer [Unknown]
  - Synovial cyst [Unknown]

NARRATIVE: CASE EVENT DATE: 20080724
